FAERS Safety Report 7332136-X (Version None)
Quarter: 2011Q1

REPORT INFORMATION
  Report Type: 
  Country: None (occurrence: None)
  Receive Date: 20110304
  Receipt Date: 20110221
  Transmission Date: 20110831
  Serious: Yes (Hospitalization, Other)
  Sender: FDA-Public Use
  Company Number: PHHY2011DE05514

PATIENT
  Sex: Male
  Weight: 24 kg

DRUGS (2)
  1. EXJADE [Suspect]
     Indication: IRON OVERLOAD
  2. EXJADE [Suspect]
     Indication: THALASSAEMIA BETA
     Dosage: 30 MG/KG, DAILY (750MG/DAY)
     Route: 048
     Dates: start: 20080901, end: 20101231

REACTIONS (4)
  - APPENDICITIS [None]
  - GASTRIC PERFORATION [None]
  - OVERDOSE [None]
  - ABDOMINAL PAIN [None]
